FAERS Safety Report 9512686 (Version 1)
Quarter: 2013Q1

REPORT INFORMATION
  Report Type: Spontaneous
  Country: US (occurrence: None)
  Receive Date: 20130305
  Receipt Date: 20130305
  Transmission Date: 20140127
  Serious: Yes (Other)
  Sender: FDA-Public Use
  Company Number: 163-21880-12100867

PATIENT
  Age: 78 Year
  Sex: Female

DRUGS (1)
  1. REVLIMID(LENALIDOMIDE) [Suspect]
     Indication: PLASMA CELL MYELOMA
     Route: 048
     Dates: start: 20110121, end: 2011

REACTIONS (4)
  - Treatment noncompliance [None]
  - Drug dose omission [None]
  - Drug administration error [None]
  - Anaemia [None]
